FAERS Safety Report 13268373 (Version 1)
Quarter: 2017Q1

REPORT INFORMATION
  Report Type: Spontaneous
  Country: US (occurrence: US)
  Receive Date: 20170224
  Receipt Date: 20170224
  Transmission Date: 20170428
  Serious: No
  Sender: FDA-Public Use
  Company Number: US-ASTRAZENECA-2017SE19199

PATIENT

DRUGS (2)
  1. SYMBICORT [Suspect]
     Active Substance: BUDESONIDE\FORMOTEROL FUMARATE DIHYDRATE
     Dosage: UNKNOWN
     Route: 055
  2. SPIRIVA [Concomitant]
     Active Substance: TIOTROPIUM BROMIDE MONOHYDRATE
     Dosage: UNKNOWN

REACTIONS (12)
  - Fatigue [Unknown]
  - Ligament pain [Unknown]
  - Back pain [Unknown]
  - Asthenia [Unknown]
  - Dyspnoea [Unknown]
  - Drug dose omission [Unknown]
  - Ligament sprain [Unknown]
  - Pain [Unknown]
  - Dry skin [Unknown]
  - Myalgia [Unknown]
  - Lymphadenopathy [Unknown]
  - Productive cough [Unknown]
